FAERS Safety Report 6547724-8 (Version None)
Quarter: 2010Q1

REPORT INFORMATION
  Report Type: 
  Country: None (occurrence: None)
  Receive Date: 20100123
  Receipt Date: 20100120
  Transmission Date: 20100710
  Serious: Yes (Death, Life-Threatening, Other)
  Sender: FDA-Public Use
  Company Number: JP-JNJFOC-20100101462

PATIENT
  Sex: Male

DRUGS (38)
  1. DUROTEP MT PATCH [Suspect]
     Indication: CANCER PAIN
     Route: 062
  2. DUROTEP MT PATCH [Suspect]
     Route: 062
  3. DUROTEP MT PATCH [Suspect]
     Route: 062
  4. DUROTEP MT PATCH [Suspect]
     Route: 062
  5. DUROTEP MT PATCH [Suspect]
     Route: 062
  6. DUROTEP MT PATCH [Suspect]
     Route: 062
  7. DUROTEP MT PATCH [Suspect]
     Route: 062
  8. DUROTEP MT PATCH [Suspect]
     Route: 062
  9. DUROTEP MT PATCH [Suspect]
     Route: 062
  10. DUROTEP MT PATCH [Suspect]
     Route: 062
  11. DUROTEP MT PATCH [Suspect]
     Route: 062
  12. DUROTEP MT PATCH [Suspect]
     Route: 062
  13. DUROTEP MT PATCH [Suspect]
     Route: 062
  14. DUROTEP MT PATCH [Suspect]
     Route: 062
  15. MORPHINE HYDROCHLORIDE [Suspect]
     Indication: CANCER PAIN
     Route: 048
  16. MORPHINE HYDROCHLORIDE [Suspect]
     Route: 048
  17. MORPHINE HYDROCHLORIDE [Suspect]
     Route: 048
  18. MORPHINE HYDROCHLORIDE [Suspect]
     Route: 048
  19. MORPHINE HYDROCHLORIDE [Suspect]
     Route: 048
  20. MORPHINE HYDROCHLORIDE [Suspect]
     Route: 048
  21. MAGLAX [Concomitant]
     Indication: CONSTIPATION
     Route: 048
  22. RIVOTRIL [Concomitant]
     Indication: ANALGESIC THERAPY
     Route: 048
  23. RIVOTRIL [Concomitant]
     Route: 048
  24. LAXOBERON [Concomitant]
     Indication: CONSTIPATION
     Route: 048
  25. OXYCONTIN [Concomitant]
     Indication: CANCER PAIN
     Route: 048
  26. CALONAL [Concomitant]
     Indication: ANALGESIC THERAPY
     Route: 048
  27. MUCOSTA [Concomitant]
     Indication: GASTRITIS
     Route: 048
  28. GASMOTIN [Concomitant]
     Indication: CONSTIPATION
     Route: 048
  29. SULBACTAM [Concomitant]
     Indication: BRONCHOPNEUMONIA
     Route: 042
  30. BISOLVON [Concomitant]
     Indication: BRONCHIECTASIS
     Route: 042
  31. NORVASC [Concomitant]
     Indication: HYPERTENSION
     Route: 048
  32. MUCODYNE [Concomitant]
     Indication: BRONCHIECTASIS
     Route: 048
  33. MEROPENEM [Concomitant]
     Indication: BRONCHOPNEUMONIA
     Route: 042
  34. GRAMALIL [Concomitant]
     Indication: DEMENTIA
     Route: 048
  35. MEXITIL [Concomitant]
     Indication: ANALGESIC THERAPY
     Route: 048
  36. CEROCRAL [Concomitant]
     Indication: ANALGESIC THERAPY
     Route: 048
  37. ROPION [Concomitant]
     Indication: ANALGESIC THERAPY
     Route: 042
  38. SEROQUEL [Concomitant]
     Indication: DELIRIUM
     Route: 048

REACTIONS (6)
  - BLOOD LACTATE DEHYDROGENASE INCREASED [None]
  - BRONCHOPNEUMONIA [None]
  - DELIRIUM [None]
  - DEMENTIA [None]
  - PAIN [None]
  - URETERIC CANCER [None]
